FAERS Safety Report 24282275 (Version 1)
Quarter: 2024Q3

REPORT INFORMATION
  Report Type: Spontaneous
  Country: CA (occurrence: None)
  Receive Date: 20240902
  Receipt Date: 20240902
  Transmission Date: 20241016
  Serious: Yes (Other)
  Sender: Public
  Company Number: None

PATIENT
  Sex: Female
  Weight: 84 kg

DRUGS (4)
  1. TRULANCE [Suspect]
     Active Substance: PLECANATIDE
     Indication: Irritable bowel syndrome
     Dosage: 1 TABLET DAILY ORAL
     Route: 048
     Dates: start: 20240831, end: 20240901
  2. ELTROXIN [Concomitant]
  3. DEXILANT [Concomitant]
  4. HYDROCHLOROTHIAZIDE [Concomitant]
     Active Substance: HYDROCHLOROTHIAZIDE

REACTIONS (8)
  - Swelling face [None]
  - Lip swelling [None]
  - Peripheral swelling [None]
  - Dyspnoea [None]
  - Dysphonia [None]
  - Discomfort [None]
  - Head discomfort [None]
  - Oropharyngeal discomfort [None]

NARRATIVE: CASE EVENT DATE: 20240901
